FAERS Safety Report 7562663-1 (Version None)
Quarter: 2011Q2

REPORT INFORMATION
  Report Type: 
  Country: None (occurrence: None)
  Receive Date: 20110622
  Receipt Date: 20110608
  Transmission Date: 20111010
  Serious: Yes (Life-Threatening, Hospitalization)
  Sender: FDA-Public Use
  Company Number: US-MYLANLABS-2011S1011923

PATIENT

DRUGS (1)
  1. FENTANYL-100 [Suspect]
     Indication: DRUG ABUSE
     Dosage: 3 X 100 MICROG/H TRANSDERMAL PATCHES
     Route: 048

REACTIONS (3)
  - LOSS OF CONSCIOUSNESS [None]
  - CYANOSIS [None]
  - HYPOXIA [None]
